FAERS Safety Report 6173294-2 (Version None)
Quarter: 2009Q2

REPORT INFORMATION
  Report Type: 
  Country: None (occurrence: None)
  Receive Date: 20090430
  Receipt Date: 20090423
  Transmission Date: 20091009
  Serious: Yes (Hospitalization)
  Sender: FDA-Public Use
  Company Number: US-ELI_LILLY_AND_COMPANY-US200902002389

PATIENT
  Sex: Female

DRUGS (9)
  1. FORTEO [Suspect]
     Indication: OSTEOPOROSIS
     Dosage: 20 UG, DAILY (1/D)
     Dates: start: 20081201, end: 20090206
  2. FORTEO [Suspect]
     Dates: end: 20090101
  3. SYMBICORT [Concomitant]
  4. SKELAXIN [Concomitant]
  5. PROVIGIL [Concomitant]
  6. XOPENEX [Concomitant]
  7. PROTONIX [Concomitant]
  8. SINGULAIR [Concomitant]
  9. CALCIUM W/VITAMIN D NOS [Concomitant]

REACTIONS (3)
  - CHEST PAIN [None]
  - HYPERTENSION [None]
  - TACHYCARDIA [None]
